FAERS Safety Report 13532967 (Version 1)
Quarter: 2017Q2

REPORT INFORMATION
  Report Type: Spontaneous
  Country: FR (occurrence: FR)
  Receive Date: 20170510
  Receipt Date: 20170510
  Transmission Date: 20170830
  Serious: Yes (Hospitalization, Other)
  Sender: FDA-Public Use
  Company Number: FR-APOTEX-2017AP011874

PATIENT

DRUGS (5)
  1. DAFALGAN [Concomitant]
     Active Substance: ACETAMINOPHEN
     Indication: PAIN
     Dosage: 1 G, UNK
     Route: 065
  2. CORTANCYL [Concomitant]
     Active Substance: PREDNISONE
     Indication: NECK PAIN
     Dosage: 60 MG, 1D
     Route: 065
     Dates: start: 20160314, end: 20160517
  3. DEROXAT [Suspect]
     Active Substance: PAROXETINE HYDROCHLORIDE
     Indication: DEPRESSION
     Dosage: 20 MG, 1D
     Route: 048
  4. CELEBREX [Interacting]
     Active Substance: CELECOXIB
     Indication: NECK PAIN
     Dosage: 200 MG, 1D
     Route: 048
     Dates: start: 20160517, end: 20170403
  5. MOPRAL                             /00661201/ [Concomitant]
     Active Substance: OMEPRAZOLE SODIUM
     Indication: PROPHYLAXIS AGAINST GASTROINTESTINAL ULCER
     Dosage: 20 MG, UNK
     Route: 065

REACTIONS (3)
  - Cerebral haematoma [Recovered/Resolved with Sequelae]
  - Intracranial mass [Recovered/Resolved with Sequelae]
  - Drug interaction [Unknown]

NARRATIVE: CASE EVENT DATE: 201704
